FAERS Safety Report 14814640 (Version 1)
Quarter: 2018Q2

REPORT INFORMATION
  Report Type: Report from Study
  Country: IR (occurrence: IR)
  Receive Date: 20180426
  Receipt Date: 20180426
  Transmission Date: 20180711
  Serious: Yes (Other)
  Sender: FDA-Public Use
  Company Number: IR-MYLANLABS-2018M1025130

PATIENT
  Sex: Female

DRUGS (2)
  1. METHOTREXATE. [Suspect]
     Active Substance: METHOTREXATE
     Indication: GESTATIONAL TROPHOBLASTIC TUMOUR
     Dosage: 50 MG/M2, QW
     Route: 030
  2. VITAMIN A                          /00056001/ [Suspect]
     Active Substance: RETINOL
     Indication: GESTATIONAL TROPHOBLASTIC TUMOUR
     Dosage: 200000 IU
     Route: 030

REACTIONS (2)
  - Papilloedema [Unknown]
  - Blindness [Unknown]
